FAERS Safety Report 24766854 (Version 1)
Quarter: 2024Q4

REPORT INFORMATION
  Report Type: Spontaneous
  Country: US (occurrence: US)
  Receive Date: 20241223
  Receipt Date: 20241223
  Transmission Date: 20250115
  Serious: No
  Sender: SANOFI AVENTIS
  Company Number: US-SA-2024SA376178

PATIENT
  Age: 49 Year

DRUGS (2)
  1. LANTUS SOLOSTAR [Suspect]
     Active Substance: INSULIN GLARGINE
     Indication: Hyperglycaemia
     Dosage: 18 U, BID
     Route: 058
  2. ADMELOG [Suspect]
     Active Substance: INSULIN LISPRO
     Indication: Hyperglycaemia
     Dosage: 6 U, TID
     Route: 058

REACTIONS (1)
  - Off label use [Unknown]
